FAERS Safety Report 6859372-0 (Version None)
Quarter: 2010Q3

REPORT INFORMATION
  Report Type: 
  Country: None (occurrence: None)
  Receive Date: 20100719
  Receipt Date: 20080325
  Transmission Date: 20110219
  Serious: No
  Sender: FDA-Public Use
  Company Number: US-PFIZER INC-2008018740

PATIENT
  Sex: Male
  Weight: 71.4 kg

DRUGS (2)
  1. CHANTIX [Suspect]
     Indication: SMOKING CESSATION THERAPY
     Dates: start: 20071201
  2. WELLBUTRIN [Concomitant]

REACTIONS (5)
  - DRUG DOSE OMISSION [None]
  - FATIGUE [None]
  - FLATULENCE [None]
  - LETHARGY [None]
  - NAUSEA [None]
